FAERS Safety Report 9641711 (Version 2)
Quarter: 2013Q4

REPORT INFORMATION
  Report Type: Report from Study
  Country: BR (occurrence: BR)
  Receive Date: 20131023
  Receipt Date: 20131211
  Transmission Date: 20140711
  Serious: Yes (Hospitalization)
  Sender: FDA-Public Use
  Company Number: BR-ROCHE-1291188

PATIENT
  Age: 52 Year
  Sex: Female
  Weight: 44.5 kg

DRUGS (5)
  1. PEG-INTERFERON ALFA 2A [Suspect]
     Indication: CHRONIC HEPATITIS C
     Route: 058
     Dates: start: 20130107
  2. RIBAVIRIN [Suspect]
     Indication: CHRONIC HEPATITIS C
     Dosage: 200/400 MG
     Route: 048
     Dates: start: 20130107, end: 20131021
  3. RIBAVIRIN [Suspect]
     Route: 048
     Dates: start: 20131109
  4. TELAPREVIR [Suspect]
     Indication: CHRONIC HEPATITIS C
     Route: 048
     Dates: start: 20130107, end: 20131021
  5. TELAPREVIR [Suspect]
     Route: 048
     Dates: start: 20131109

REACTIONS (1)
  - Malnutrition [Recovered/Resolved]
